FAERS Safety Report 7482747-6 (Version None)
Quarter: 2011Q2

REPORT INFORMATION
  Report Type: 
  Country: None (occurrence: None)
  Receive Date: 20110516
  Receipt Date: 20110503
  Transmission Date: 20111010
  Serious: Yes (Hospitalization)
  Sender: FDA-Public Use
  Company Number: US-UCBSA-032255

PATIENT
  Sex: Female

DRUGS (8)
  1. WARFARIN SODIUM [Suspect]
     Indication: THROMBOSIS PROPHYLAXIS
     Route: 048
     Dates: start: 20100118, end: 20100830
  2. METOLAZONE [Suspect]
     Dosage: 5 MG
     Dates: end: 20100830
  3. LASIX [Suspect]
     Dates: end: 20100830
  4. LEVOXYL [Concomitant]
  5. AMIODARONE HCL [Concomitant]
  6. FOSAMAX [Concomitant]
  7. DOXAZOSIN MESYLATE [Concomitant]
  8. APIXABAN [Suspect]
     Indication: THROMBOSIS PROPHYLAXIS
     Route: 048
     Dates: start: 20100118, end: 20100830

REACTIONS (5)
  - WRIST FRACTURE [None]
  - BRADYCARDIA [None]
  - SYNCOPE [None]
  - RENAL FAILURE ACUTE [None]
  - ANAEMIA [None]
